FAERS Safety Report 5685855-5 (Version None)
Quarter: 2008Q1

REPORT INFORMATION
  Report Type: 
  Country: None (occurrence: None)
  Receive Date: 20080328
  Receipt Date: 20080312
  Transmission Date: 20080703
  Serious: No
  Sender: FDA-Public Use
  Company Number: GB-BAYER-200711021BNE

PATIENT
  Age: 76 Year
  Sex: Male

DRUGS (5)
  1. CIPROXIN [Suspect]
     Indication: BRONCHITIS
     Dosage: TOTAL DAILY DOSE: 1000 MG
     Route: 048
     Dates: start: 20070918, end: 20070923
  2. AMLODIPINE [Concomitant]
     Route: 048
  3. LOSARTAN POTASSIUM [Concomitant]
     Dosage: TOTAL DAILY DOSE: 100 MG
     Route: 048
  4. LANSOPRAZOLE [Concomitant]
     Route: 048
  5. SIMVASTATIN [Concomitant]
     Route: 048

REACTIONS (3)
  - EAR DISCOMFORT [None]
  - HEART RATE IRREGULAR [None]
  - TINNITUS [None]
